FAERS Safety Report 26083216 (Version 2)
Quarter: 2025Q4

REPORT INFORMATION
  Report Type: Spontaneous
  Country: JP (occurrence: JP)
  Receive Date: 20251124
  Receipt Date: 20251204
  Transmission Date: 20260117
  Serious: Yes (Death, Hospitalization)
  Sender: AMGEN
  Company Number: JP-AMGEN-JPNSP2025228910

PATIENT
  Age: 65 Year
  Sex: Male

DRUGS (10)
  1. BEVACIZUMAB [Suspect]
     Active Substance: BEVACIZUMAB
     Indication: Colorectal cancer metastatic
     Dosage: 5 MILLIGRAM/KILOGRAM
     Route: 065
  2. BEVACIZUMAB [Suspect]
     Active Substance: BEVACIZUMAB
     Indication: BRAF V600E mutation positive
  3. PREDNISOLONE [Concomitant]
     Active Substance: PREDNISOLONE
     Indication: Sarcoidosis
     Dosage: 5 MILLIGRAM, QD (TAPERING)
     Route: 048
  4. PREDNISOLONE [Concomitant]
     Active Substance: PREDNISOLONE
     Indication: Pneumonitis
  5. FLUOROURACIL [Concomitant]
     Active Substance: FLUOROURACIL
     Indication: Colorectal cancer metastatic
     Dosage: 400 MILLIGRAM/SQ. METER, (BOLUS)
     Route: 040
  6. FLUOROURACIL [Concomitant]
     Active Substance: FLUOROURACIL
     Indication: BRAF V600E mutation positive
     Dosage: 2400 MILLIGRAM/SQ. METER, (CONTINUOUS INFUSION OVER 48 H)
     Route: 040
  7. LEUCOVORIN [Concomitant]
     Active Substance: LEUCOVORIN\LEUCOVORIN CALCIUM
     Indication: Colorectal cancer metastatic
     Dosage: 200 MILLIGRAM/SQ. METER, (ON DAY 1)
  8. LEUCOVORIN [Concomitant]
     Active Substance: LEUCOVORIN\LEUCOVORIN CALCIUM
     Indication: BRAF V600E mutation positive
  9. OXALIPLATIN [Concomitant]
     Active Substance: OXALIPLATIN
     Indication: Colorectal cancer metastatic
     Dosage: 85 MILLIGRAM/SQ. METER, (ON DAY 1)
  10. OXALIPLATIN [Concomitant]
     Active Substance: OXALIPLATIN
     Indication: BRAF V600E mutation positive

REACTIONS (10)
  - Rectal cancer metastatic [Fatal]
  - Pneumonitis [Fatal]
  - Pancreatitis [Fatal]
  - Duodenal perforation [Unknown]
  - Fistula of small intestine [Unknown]
  - Acute respiratory distress syndrome [Unknown]
  - Abdominal abscess [Unknown]
  - Neuropathy peripheral [Unknown]
  - Stenotrophomonas test positive [Unknown]
  - Therapy partial responder [Unknown]
